FAERS Safety Report 9869304 (Version 2)
Quarter: 2014Q2

REPORT INFORMATION
  Report Type: Report from Study
  Country: SE (occurrence: SE)
  Receive Date: 20140205
  Receipt Date: 20140429
  Transmission Date: 20141212
  Serious: Yes (Hospitalization)
  Sender: FDA-Public Use
  Company Number: SE-ALEXION PHARMACEUTICALS INC.-A201303794

PATIENT
  Sex: 0

DRUGS (6)
  1. ECULIZUMAB [Suspect]
     Indication: HAEMOLYTIC URAEMIC SYNDROME
     Dosage: UNK
     Route: 042
  2. CELLCEPT [Concomitant]
     Indication: PROPHYLAXIS
     Dosage: UNK
     Route: 048
     Dates: start: 20120518, end: 20140130
  3. PLASMA PROTEIN FRACTION (HUMAN) [Concomitant]
     Indication: IMMUNOLOGY TEST ABNORMAL
     Dosage: 250 ML, UNK
     Route: 042
     Dates: start: 20120501, end: 20140127
  4. PLASMA PROTEIN FRACTION (HUMAN) [Concomitant]
     Indication: COMPLEMENT FACTOR
  5. CYCLOPHOSPHAMIDE [Concomitant]
     Indication: IMMUNOSUPPRESSION
     Dosage: UNK
     Dates: start: 20140204
  6. PREDNISOLONE [Concomitant]
     Indication: IMMUNOSUPPRESSION
     Dosage: UNK
     Dates: start: 20140203

REACTIONS (4)
  - Unevaluable event [Recovered/Resolved]
  - Plasmapheresis [Recovered/Resolved]
  - Unevaluable event [Unknown]
  - Central venous catheterisation [Unknown]
